FAERS Safety Report 11616392 (Version 1)
Quarter: 2015Q4

REPORT INFORMATION
  Report Type: Spontaneous
  Country: DE (occurrence: DE)
  Receive Date: 20151009
  Receipt Date: 20151009
  Transmission Date: 20160304
  Serious: Yes (Hospitalization)
  Sender: FDA-Public Use
  Company Number: DE-PFIZER INC-2015331524

PATIENT
  Age: 84 Year
  Sex: Female
  Weight: 66 kg

DRUGS (9)
  1. HCT AL [Concomitant]
     Dosage: 12.5 MG, 1X/DAY
     Route: 048
  2. GABAPENTIN. [Suspect]
     Active Substance: GABAPENTIN
     Indication: NEURALGIA
     Dosage: 100 MG, 3X/DAY
     Route: 048
     Dates: start: 2013, end: 20150818
  3. TILIDIN 100/8 MG RETARD 1 A PHARMA [Concomitant]
     Dosage: 1 DF, 3X/DAY
     Route: 048
  4. ALENDRO-Q [Concomitant]
     Dosage: 70 MG, WEEKLY
     Route: 048
  5. AMLODIPIN 1 A PHARMA [Concomitant]
     Dosage: 5 MG, 1X/DAY
     Route: 048
  6. METOHEXAL [Concomitant]
     Active Substance: METOPROLOL SUCCINATE
     Dosage: 47.5 MG, 2X/DAY
     Route: 048
  7. CANDESARTAN 1 A PHARMA [Concomitant]
     Dosage: 32 MG, 1X/DAY
     Route: 048
  8. NOVAMINSULFON RAT 500 MG/ML [Concomitant]
     Dosage: 40 MG, 4X/DAY
     Route: 048
  9. CALCIUM D3 STADA 1000MG/880 [Concomitant]
     Dosage: 1 DF, DAILY
     Route: 048

REACTIONS (2)
  - Hyponatraemia [Recovered/Resolved]
  - Inappropriate antidiuretic hormone secretion [Recovered/Resolved]

NARRATIVE: CASE EVENT DATE: 20150807
